FAERS Safety Report 4963430-5 (Version None)
Quarter: 2006Q2

REPORT INFORMATION
  Report Type: 
  Country: None (occurrence: None)
  Receive Date: 20060405
  Receipt Date: 20060331
  Transmission Date: 20061013
  Serious: Yes (Death)
  Sender: FDA-Public Use
  Company Number: GB-SANOFI-SYNTHELABO-F01200600941

PATIENT
  Sex: Male
  Weight: 89.4 kg

DRUGS (2)
  1. OXALIPLATIN [Suspect]
     Indication: COLORECTAL CANCER METASTATIC
     Route: 042
     Dates: start: 20060308, end: 20060308
  2. CAPECITABINE [Suspect]
     Dosage: 1000 MG PO BID DAYS 1-14, Q3W
     Route: 048
     Dates: start: 20060308, end: 20060322

REACTIONS (4)
  - DEATH [None]
  - DECREASED APPETITE [None]
  - DIARRHOEA [None]
  - FATIGUE [None]
